FAERS Safety Report 16203647 (Version 2)
Quarter: 2019Q3

REPORT INFORMATION
  Report Type: Spontaneous
  Country: US (occurrence: US)
  Receive Date: 20190416
  Receipt Date: 20190827
  Transmission Date: 20191004
  Serious: Yes (Other)
  Sender: FDA-Public Use
  Company Number: US-AMGEN-USASP2019057965

PATIENT

DRUGS (6)
  1. PEMBROLIZUMAB. [Concomitant]
     Active Substance: PEMBROLIZUMAB
     Indication: MALIGNANT MELANOMA
     Dosage: UNK
  2. INTERFERON ALFA NOS [Concomitant]
     Active Substance: INTERFERON ALFA-2A OR INTERFERON ALFA-2B
     Indication: MALIGNANT MELANOMA
     Dosage: UNK
  3. INTERFERON [Concomitant]
     Active Substance: INTERFERON
     Indication: MALIGNANT MELANOMA
     Dosage: UNK
  4. NIVOLUMAB [Concomitant]
     Active Substance: NIVOLUMAB
     Indication: MALIGNANT MELANOMA
     Dosage: UNK
  5. TALIMOGENE LAHERPAREPVEC [Suspect]
     Active Substance: TALIMOGENE LAHERPAREPVEC
     Indication: MELANOMA RECURRENT
     Dosage: 10^6 PFU/ML
     Route: 026
  6. INTERLEUKIN-2 [Concomitant]
     Active Substance: ALDESLEUKIN
     Indication: MALIGNANT MELANOMA
     Dosage: UNK

REACTIONS (20)
  - Stomatitis [Recovered/Resolved]
  - Rash pruritic [Recovered/Resolved]
  - Injection site haemorrhage [Recovered/Resolved]
  - Nausea [Recovered/Resolved]
  - Influenza like illness [Recovered/Resolved]
  - Skin necrosis [Unknown]
  - Tumour pseudoprogression [Unknown]
  - Vomiting [Recovered/Resolved]
  - Therapy partial responder [Unknown]
  - Injection site cellulitis [Recovered/Resolved]
  - Herpes simplex [Recovered/Resolved]
  - Fatigue [Recovered/Resolved]
  - Headache [Recovered/Resolved]
  - Injection site erythema [Recovered/Resolved]
  - Chills [Recovered/Resolved]
  - Malignant melanoma [Recovered/Resolved]
  - Injection site bruising [Recovered/Resolved]
  - Pyrexia [Recovered/Resolved]
  - Pemphigoid [Recovered/Resolved]
  - Off label use [Unknown]
